FAERS Safety Report 10807237 (Version 1)
Quarter: 2015Q1

REPORT INFORMATION
  Report Type: Report from Study
  Country: US (occurrence: US)
  Receive Date: 20150217
  Receipt Date: 20150217
  Transmission Date: 20150721
  Serious: No
  Sender: FDA-Public Use
  Company Number: US-ABBVIE-14K-163-1255364-00

PATIENT
  Age: 48 Year
  Sex: Female

DRUGS (10)
  1. ICE PACK [Concomitant]
     Indication: PAIN
     Dosage: ALTERNATING WITH HEATING PAD
  2. SYNTHROID [Concomitant]
     Active Substance: LEVOTHYROXINE SODIUM
     Indication: THYROID DISORDER
  3. TRAMADOL [Concomitant]
     Active Substance: TRAMADOL
     Indication: PAIN
  4. HUMIRA [Suspect]
     Active Substance: ADALIMUMAB
     Indication: RHEUMATOID ARTHRITIS
     Route: 065
     Dates: start: 20140613
  5. METHOTREXATE [Concomitant]
     Active Substance: METHOTREXATE
     Indication: PRODUCT USED FOR UNKNOWN INDICATION
  6. PREDNISONE. [Concomitant]
     Active Substance: PREDNISONE
     Indication: PRODUCT USED FOR UNKNOWN INDICATION
     Dosage: TAPER
  7. PHENTERMINE [Concomitant]
     Active Substance: PHENTERMINE
     Indication: WEIGHT DECREASED
  8. TRAMADOL [Concomitant]
     Active Substance: TRAMADOL
     Indication: FIBROMYALGIA
     Dosage: EVERY MORNING
  9. FOLIC ACID. [Concomitant]
     Active Substance: FOLIC ACID
     Indication: PRODUCT USED FOR UNKNOWN INDICATION
  10. HYDROCODONE [Concomitant]
     Active Substance: HYDROCODONE
     Indication: PAIN
     Dosage: 7.5/325 MG

REACTIONS (16)
  - Urticaria papular [Not Recovered/Not Resolved]
  - Choking [Not Recovered/Not Resolved]
  - Pruritus [Not Recovered/Not Resolved]
  - Rash papular [Recovered/Resolved]
  - Rash pruritic [Unknown]
  - Hiatus hernia [Unknown]
  - Gastrooesophageal reflux disease [Not Recovered/Not Resolved]
  - Headache [Recovered/Resolved]
  - Hypoaesthesia [Recovering/Resolving]
  - Drug effect decreased [Recovered/Resolved]
  - Urinary tract infection [Recovered/Resolved]
  - Rash papular [Unknown]
  - Bursitis [Unknown]
  - Injection site pain [Not Recovered/Not Resolved]
  - Vomiting [Recovered/Resolved]
  - Urinary tract infection [Recovered/Resolved]

NARRATIVE: CASE EVENT DATE: 2014
